FAERS Safety Report 14344049 (Version 3)
Quarter: 2024Q4

REPORT INFORMATION
  Report Type: Report from Study
  Country: IL (occurrence: IL)
  Receive Date: 20180102
  Receipt Date: 20241113
  Transmission Date: 20250115
  Serious: Yes (Hospitalization, Other)
  Sender: TAKEDA
  Company Number: IL-SHIRE-IL201735251

PATIENT
  Age: 12 Year
  Sex: Female

DRUGS (3)
  1. VELAGLUCERASE ALFA [Suspect]
     Active Substance: VELAGLUCERASE ALFA
     Indication: Gaucher^s disease
     Dosage: UNK UNK, Q2WEEKS
     Dates: start: 20151108
  2. VELAGLUCERASE ALFA [Suspect]
     Active Substance: VELAGLUCERASE ALFA
     Dosage: 400 INTERNATIONAL UNIT, Q2WEEKS
     Dates: start: 20171219
  3. VELAGLUCERASE ALFA [Suspect]
     Active Substance: VELAGLUCERASE ALFA
     Dosage: UNK UNK, Q2WEEKS

REACTIONS (9)
  - Loss of consciousness [Recovering/Resolving]
  - Malaise [Unknown]
  - Eye movement disorder [Unknown]
  - Stupor [Unknown]
  - Somnolence [Not Recovered/Not Resolved]
  - Asthenia [Unknown]
  - Vomiting [Not Recovered/Not Resolved]
  - Product availability issue [Recovered/Resolved]
  - Inappropriate schedule of product administration [Recovered/Resolved]

NARRATIVE: CASE EVENT DATE: 20241006
